FAERS Safety Report 8291329-8 (Version None)
Quarter: 2012Q2

REPORT INFORMATION
  Report Type: 
  Country: None (occurrence: None)
  Receive Date: 20120417
  Receipt Date: 20120410
  Transmission Date: 20120825
  Serious: Yes (Death, Hospitalization)
  Sender: FDA-Public Use
  Company Number: US-GLAXOSMITHKLINE-A0922539A

PATIENT
  Sex: Male
  Weight: 105.5 kg

DRUGS (4)
  1. LISINOPRIL [Concomitant]
  2. AVANDIA [Suspect]
     Indication: TYPE 2 DIABETES MELLITUS
     Route: 048
     Dates: start: 20001001, end: 20101209
  3. AMARYL [Concomitant]
  4. LEVITRA [Concomitant]

REACTIONS (4)
  - CARDIAC FAILURE CONGESTIVE [None]
  - MYOCARDIAL INFARCTION [None]
  - DEATH [None]
  - CARDIOVASCULAR DISORDER [None]
